FAERS Safety Report 7914639 (Version 6)
Quarter: 2015Q4

REPORT INFORMATION
  Report Type: Spontaneous
  Country: US (occurrence: US)
  Receive Date: 20110426
  Receipt Date: 20151202
  Transmission Date: 20160305
  Serious: Yes (Hospitalization, Other)
  Sender: FDA-Public Use
  Company Number: US-BAYER-2011-032967

PATIENT
  Age: 41 Year
  Sex: Female
  Weight: 88 kg

DRUGS (5)
  1. YASMIN [Suspect]
     Active Substance: DROSPIRENONE\ETHINYL ESTRADIOL
     Indication: CONTRACEPTION
  2. BEXTRA [Concomitant]
     Active Substance: VALDECOXIB
     Indication: PAIN
     Dosage: 20 MG, UNK
     Route: 048
     Dates: start: 20040806
  3. YASMIN [Suspect]
     Active Substance: DROSPIRENONE\ETHINYL ESTRADIOL
     Indication: CONTRACEPTION
     Dosage: UNK
     Dates: start: 200403, end: 200406
  4. ULTRACET [Concomitant]
     Active Substance: ACETAMINOPHEN\TRAMADOL HYDROCHLORIDE
     Indication: PAIN
     Dosage: UNK
     Route: 048
     Dates: start: 20040809
  5. LORTAB [Concomitant]
     Active Substance: ACETAMINOPHEN\HYDROCODONE BITARTRATE
     Indication: PAIN
     Dosage: UNK
     Route: 048
     Dates: start: 20040812

REACTIONS (6)
  - Cerebrovascular accident [None]
  - Thrombosis [None]
  - Pain [None]
  - Mental disorder [None]
  - Injury [None]
  - Transverse sinus thrombosis [Recovering/Resolving]

NARRATIVE: CASE EVENT DATE: 20040811
